FAERS Safety Report 14854877 (Version 1)
Quarter: 2018Q2

REPORT INFORMATION
  Report Type: Spontaneous
  Country: US (occurrence: US)
  Receive Date: 20180420
  Receipt Date: 20180420
  Transmission Date: 20180711
  Serious: No
  Sender: FDA-Public Use
  Company Number: None

PATIENT
  Age: 64 Year
  Sex: Female
  Weight: 96.16 kg

DRUGS (6)
  1. ZOVIRAX [Suspect]
     Active Substance: ACYCLOVIR
     Indication: EYE INFECTION VIRAL
     Dosage: ?          QUANTITY:800 MG MILLIGRAM(S);?
     Route: 048
     Dates: start: 20180303, end: 20180303
  2. ZOLOFT [Concomitant]
     Active Substance: SERTRALINE HYDROCHLORIDE
  3. GLIPIZIDE. [Concomitant]
     Active Substance: GLIPIZIDE
  4. PRILOSEC [Concomitant]
     Active Substance: OMEPRAZOLE MAGNESIUM
  5. METFORMIN HCL [Concomitant]
     Active Substance: METFORMIN HYDROCHLORIDE
  6. COZAAR [Concomitant]
     Active Substance: LOSARTAN POTASSIUM

REACTIONS (6)
  - Blood pressure increased [None]
  - Pruritus [None]
  - Formication [None]
  - Paraesthesia [None]
  - Erythema [None]
  - Crying [None]

NARRATIVE: CASE EVENT DATE: 20180329
